FAERS Safety Report 8953640 (Version 4)
Quarter: 2013Q3

REPORT INFORMATION
  Report Type: Spontaneous
  Country: JP (occurrence: JP)
  Receive Date: 20121206
  Receipt Date: 20130715
  Transmission Date: 20140515
  Serious: Yes (Death, Hospitalization)
  Sender: FDA-Public Use
  Company Number: JP-ABBOTT-11P-087-0844956-00

PATIENT
  Age: 78 Year
  Sex: Female
  Weight: 57 kg

DRUGS (14)
  1. HUMIRA [Suspect]
     Indication: RHEUMATOID ARTHRITIS
     Route: 058
     Dates: start: 20110623, end: 20110708
  2. METHOTREXATE [Concomitant]
     Indication: RHEUMATOID ARTHRITIS
     Dates: start: 2008, end: 20110718
  3. METHOTREXATE [Concomitant]
     Dates: start: 20110805, end: 20110902
  4. SALAZOSULFAPYRIDINE [Concomitant]
     Indication: RHEUMATOID ARTHRITIS
     Dates: end: 20110623
  5. PREDNISOLONE [Concomitant]
     Indication: RHEUMATOID ARTHRITIS
     Dates: start: 2008
  6. PREDNISOLONE [Concomitant]
     Dates: end: 20110902
  7. FOLIC ACID [Concomitant]
     Indication: PROPHYLAXIS
     Dates: start: 201106, end: 20110718
  8. FOLIC ACID [Concomitant]
     Dates: start: 20110805, end: 20110902
  9. ISONIAZID [Concomitant]
     Indication: ANTIBIOTIC PROPHYLAXIS
     Route: 048
     Dates: start: 20110603, end: 20110718
  10. ISONIAZID [Concomitant]
     Dates: start: 20110805, end: 20110902
  11. CELECOXIB [Concomitant]
     Indication: RHEUMATOID ARTHRITIS
     Route: 048
  12. CELECOXIB [Concomitant]
     Dates: end: 20110902
  13. REBAMIPIDE [Concomitant]
     Indication: GASTRITIS PROPHYLAXIS
     Route: 048
     Dates: end: 20110718
  14. REBAMIPIDE [Concomitant]
     Dates: start: 20110805, end: 20110902

REACTIONS (6)
  - Respiratory failure [Fatal]
  - Pneumonia legionella [Recovered/Resolved]
  - Interstitial lung disease [Fatal]
  - Pneumonia legionella [Unknown]
  - Respiratory moniliasis [Unknown]
  - Drug ineffective [Unknown]
